FAERS Safety Report 15858928 (Version 2)
Quarter: 2019Q1

REPORT INFORMATION
  Report Type: Spontaneous
  Country: JP (occurrence: JP)
  Receive Date: 20190123
  Receipt Date: 20190129
  Transmission Date: 20190417
  Serious: Yes (Other)
  Sender: FDA-Public Use
  Company Number: JP-GLAXOSMITHKLINE-JP2019JPN007064

PATIENT
  Age: 66 Year
  Sex: Male

DRUGS (2)
  1. VALTREX [Suspect]
     Active Substance: VALACYCLOVIR HYDROCHLORIDE
     Indication: HERPES ZOSTER
     Dosage: 250 MG, 1D
     Route: 048
  2. VALTREX [Suspect]
     Active Substance: VALACYCLOVIR HYDROCHLORIDE
     Dosage: 500 MG, 1D
     Route: 048

REACTIONS (7)
  - Restlessness [Unknown]
  - Speech disorder [Unknown]
  - Toxic encephalopathy [Unknown]
  - Treatment noncompliance [Unknown]
  - Lacunar infarction [Unknown]
  - Delirium [Unknown]
  - Altered state of consciousness [Recovered/Resolved]
